FAERS Safety Report 11408491 (Version 1)
Quarter: 2015Q3

REPORT INFORMATION
  Report Type: Spontaneous
  Country: US (occurrence: US)
  Receive Date: 20150821
  Receipt Date: 20150821
  Transmission Date: 20151125
  Serious: No
  Sender: FDA-Public Use
  Company Number: US-NOVOPROD-436927

PATIENT
  Age: 66 Year
  Sex: Male

DRUGS (1)
  1. VICTOZA [Suspect]
     Active Substance: LIRAGLUTIDE
     Indication: TYPE 2 DIABETES MELLITUS
     Dosage: 1.8 MG, QD
     Route: 058

REACTIONS (8)
  - Product quality issue [Recovered/Resolved]
  - Vomiting [Recovered/Resolved]
  - Fatigue [Recovered/Resolved]
  - Balance disorder [Recovered/Resolved]
  - Cold sweat [Recovered/Resolved]
  - Headache [Recovered/Resolved]
  - Asthenia [Recovered/Resolved]
  - Dizziness [Recovered/Resolved]
